FAERS Safety Report 15068589 (Version 2)
Quarter: 2018Q3

REPORT INFORMATION
  Report Type: Spontaneous
  Country: US (occurrence: US)
  Receive Date: 20180626
  Receipt Date: 20180817
  Transmission Date: 20181010
  Serious: Yes (Other)
  Sender: FDA-Public Use
  Company Number: US-TEVA-2018-US-911991

PATIENT
  Sex: Male

DRUGS (20)
  1. CLORAZEPATE DIPOT [Concomitant]
     Active Substance: CLORAZEPATE DIPOTASSIUM
  2. BENAZEPRIL AND HYDROCHLOROTHIAZIDE [Concomitant]
     Active Substance: BENAZEPRIL HYDROCHLORIDE\HYDROCHLOROTHIAZIDE
  3. CARVEDIOL [Concomitant]
     Active Substance: CARVEDILOL
  4. AMLODIPINE [Concomitant]
     Active Substance: AMLODIPINE BESYLATE
  5. XTANDI [Interacting]
     Active Substance: ENZALUTAMIDE
     Dosage: 160 MILLIGRAM DAILY;
     Route: 048
  6. LANTUS [Concomitant]
     Active Substance: INSULIN GLARGINE
  7. WARFARIN [Suspect]
     Active Substance: WARFARIN
     Indication: PRODUCT USED FOR UNKNOWN INDICATION
     Route: 065
  8. ATORVASTATIN [Concomitant]
     Active Substance: ATORVASTATIN
  9. DIGOX [Concomitant]
     Active Substance: DIGOXIN
  10. CLONAZEPAM. [Concomitant]
     Active Substance: CLONAZEPAM
  11. CONTOUR [Concomitant]
  12. XTANDI [Interacting]
     Active Substance: ENZALUTAMIDE
     Indication: PROSTATE CANCER
     Dosage: 160 MILLIGRAM DAILY;
     Route: 048
     Dates: start: 20171024
  13. DIPHENOXYLATE/ATROPINE [Concomitant]
     Active Substance: ATROPINE\DIPHENOXYLATE
  14. POTASSIUM CHLORIDE. [Concomitant]
     Active Substance: POTASSIUM CHLORIDE
  15. GABAPENTIN. [Concomitant]
     Active Substance: GABAPENTIN
  16. XTANDI [Interacting]
     Active Substance: ENZALUTAMIDE
     Dosage: 120 MILLIGRAM DAILY;
     Route: 048
  17. OMEGA?3 FATTY ACIDS [Concomitant]
     Active Substance: OMEGA-3 FATTY ACIDS
  18. WARFARIN [Concomitant]
     Active Substance: WARFARIN
  19. MEGESTROL ACETATE. [Concomitant]
     Active Substance: MEGESTROL ACETATE
  20. HYDROCODONE BITARTRATE AND ACETAMINOPHEN [Concomitant]
     Active Substance: ACETAMINOPHEN\HYDROCODONE BITARTRATE

REACTIONS (8)
  - Visual impairment [Unknown]
  - Back pain [Not Recovered/Not Resolved]
  - Sleep disorder [Not Recovered/Not Resolved]
  - Personality change [Not Recovered/Not Resolved]
  - Diarrhoea [Not Recovered/Not Resolved]
  - Memory impairment [Not Recovered/Not Resolved]
  - Drug interaction [Not Recovered/Not Resolved]
  - Hallucination [Not Recovered/Not Resolved]
